FAERS Safety Report 12632651 (Version 2)
Quarter: 2016Q3

REPORT INFORMATION
  Report Type: Spontaneous
  Country: US (occurrence: US)
  Receive Date: 20160808
  Receipt Date: 20160808
  Transmission Date: 20161109
  Serious: No
  Sender: FDA-Public Use
  Company Number: US-BEH-2015056412

PATIENT
  Age: 76 Year
  Sex: Male
  Weight: 92 kg

DRUGS (29)
  1. POTASSIUM [Concomitant]
     Active Substance: POTASSIUM
  2. DIPHENHYDRAMINE. [Concomitant]
     Active Substance: DIPHENHYDRAMINE
  3. EPI-PEN AUTOINJECTOR [Concomitant]
  4. PROTONIX DR [Concomitant]
  5. LIPITOR [Concomitant]
     Active Substance: ATORVASTATIN CALCIUM
  6. SAW PALMETTO [Concomitant]
     Active Substance: SAW PALMETTO
  7. LASIX [Concomitant]
     Active Substance: FUROSEMIDE
  8. NORVASC [Concomitant]
     Active Substance: AMLODIPINE BESYLATE
  9. LISINOPRIL. [Concomitant]
     Active Substance: LISINOPRIL
  10. ATIVAN [Concomitant]
     Active Substance: LORAZEPAM
  11. HIZENTRA [Suspect]
     Active Substance: HUMAN IMMUNOGLOBULIN G
     Route: 058
     Dates: start: 20120508
  12. ACETAMINOPHEN. [Concomitant]
     Active Substance: ACETAMINOPHEN
  13. VITAMIN C [Concomitant]
     Active Substance: ASCORBIC ACID
  14. NITROGLYCERIN. [Concomitant]
     Active Substance: NITROGLYCERIN
  15. GLUCOPHAGE [Concomitant]
     Active Substance: METFORMIN HYDROCHLORIDE
  16. THEO-24 ER [Concomitant]
  17. BUDESONIDE. [Concomitant]
     Active Substance: BUDESONIDE
     Dosage: 0.5 MG/2ML SUSP
  18. GLIPIZIDE. [Concomitant]
     Active Substance: GLIPIZIDE
  19. FISH OIL [Concomitant]
     Active Substance: FISH OIL
     Dosage: SOFTGEL
  20. FLONASE [Concomitant]
     Active Substance: FLUTICASONE PROPIONATE
  21. TRAZODONE [Concomitant]
     Active Substance: TRAZODONE HYDROCHLORIDE
  22. FLOMAX [Concomitant]
     Active Substance: TAMSULOSIN HYDROCHLORIDE
  23. MUCINEX ER [Concomitant]
  24. HIZENTRA [Suspect]
     Active Substance: HUMAN IMMUNOGLOBULIN G
     Route: 058
  25. HIZENTRA [Suspect]
     Active Substance: HUMAN IMMUNOGLOBULIN G
     Indication: IMMUNODEFICIENCY COMMON VARIABLE
     Route: 058
  26. LIDOCAINE/PRILOCAINE [Concomitant]
     Active Substance: LIDOCAINE\PRILOCAINE
  27. BIOTIN [Concomitant]
     Active Substance: BIOTIN
  28. OXYGEN. [Concomitant]
     Active Substance: OXYGEN
  29. ASPIRIN. [Concomitant]
     Active Substance: ASPIRIN

REACTIONS (1)
  - Pruritus [Recovered/Resolved]

NARRATIVE: CASE EVENT DATE: 20151104
